FAERS Safety Report 5897101-8 (Version None)
Quarter: 2008Q3

REPORT INFORMATION
  Report Type: 
  Country: None (occurrence: None)
  Receive Date: 20080924
  Receipt Date: 20080703
  Transmission Date: 20090109
  Serious: Yes (Other)
  Sender: FDA-Public Use
  Company Number: US-ASTRAZENECA-2008UW12275

PATIENT
  Age: 60 Year
  Sex: Male

DRUGS (11)
  1. SEROQUEL [Suspect]
     Indication: SCHIZOPHRENIA
     Route: 048
  2. LITHIUM CARBONATE [Concomitant]
  3. ZYPREXA [Concomitant]
  4. DEPAKOTE [Concomitant]
  5. CLONAPINE [Concomitant]
  6. AMBIEN [Concomitant]
  7. TRAZODONE HCL [Concomitant]
  8. LAMICTAL [Concomitant]
  9. METFORMIN HCL [Concomitant]
  10. PRAVACHOL [Concomitant]
  11. SYNTHROID [Concomitant]

REACTIONS (2)
  - CATARACT [None]
  - TYPE 2 DIABETES MELLITUS [None]
